FAERS Safety Report 7810279-1 (Version None)
Quarter: 2011Q4

REPORT INFORMATION
  Report Type: 
  Country: None (occurrence: None)
  Receive Date: 20111012
  Receipt Date: 20111010
  Transmission Date: 20120403
  Serious: Yes (Death, Hospitalization, Other)
  Sender: FDA-Public Use
  Company Number: VE-PFIZER INC-2011235518

PATIENT
  Age: 66 Year
  Sex: Female

DRUGS (1)
  1. LIPITOR [Suspect]
     Indication: CARDIAC DISORDER
     Dosage: 40 MG, ONCE A DAY
     Route: 048
     Dates: start: 20070101, end: 20110501

REACTIONS (2)
  - RESPIRATORY ARREST [None]
  - DYSPNOEA [None]
